FAERS Safety Report 9041072 (Version 1)
Quarter: 2013Q1

REPORT INFORMATION
  Report Type: Report from Study
  Country: US (occurrence: US)
  Receive Date: 20130129
  Receipt Date: 20130129
  Transmission Date: 20140127
  Serious: No
  Sender: FDA-Public Use
  Company Number: US-ABBOTT-12P-163-0902952-00

PATIENT
  Age: 63 Year
  Sex: Female

DRUGS (16)
  1. HUMIRA 40 MG/0.8 ML PEN [Suspect]
     Indication: PSORIASIS
     Route: 058
     Dates: start: 20120119
  2. CELEBREX [Concomitant]
     Indication: PAIN
     Dosage: 200 MG DAILY
     Route: 048
  3. TYLENOL PM [Concomitant]
     Indication: PAIN
     Dosage: AT BEDTIME
     Route: 048
  4. NOVOLOG [Concomitant]
     Indication: DIABETES MELLITUS
     Dosage: 22 UNITS AM/28 UNITS NOON/24 UNITS SUPPER
     Route: 050
  5. LANTUS [Concomitant]
     Indication: DIABETES MELLITUS
     Dosage: AT BEDTIME
     Route: 050
  6. METFORMIN [Concomitant]
     Indication: DIABETES MELLITUS
     Dosage: 1000 MG AM/500 MG SUPPER/500 MG AT BEDTIME
     Route: 048
  7. LOTENSIN [Concomitant]
     Indication: BLOOD PRESSURE
     Dosage: 40 MG DAILY
     Route: 048
  8. LOPRESSOR [Concomitant]
     Indication: BLOOD PRESSURE
     Dosage: 25 MG EVERY 12 HOURS
     Route: 048
  9. NORVASC [Concomitant]
     Indication: BLOOD PRESSURE
     Dosage: 10 MG DAILY
     Route: 048
  10. ASA [Concomitant]
     Indication: CARDIAC DISORDER
     Dosage: 81 MG DAILY
     Route: 048
  11. LIPTOR [Concomitant]
     Indication: CARDIAC DISORDER
     Dosage: 80 MG DAILY
  12. PLAVIX [Concomitant]
     Indication: CARDIAC DISORDER
     Dosage: 75 MG DAILY
     Route: 048
  13. AMBIEN CR [Concomitant]
     Indication: INSOMNIA
     Dosage: 12.5 MG AT BEDTIME
     Route: 048
  14. NEXIUM [Concomitant]
     Indication: GASTRIC DISORDER
     Dosage: ONE ORAL TWICE A DAY
  15. MXT [Concomitant]
     Indication: PRODUCT USED FOR UNKNOWN INDICATION
     Dosage: 2.5 MG X 6 TABS EVERY SUNDAY
     Route: 048
  16. NEURONTIN [Concomitant]
     Indication: PRODUCT USED FOR UNKNOWN INDICATION
     Dosage: 300 MG X 3 TIMES DAILY = 900 MG
     Route: 048

REACTIONS (1)
  - Pain [Recovering/Resolving]
